FAERS Safety Report 16198184 (Version 1)
Quarter: 2019Q2

REPORT INFORMATION
  Report Type: Spontaneous
  Country: US (occurrence: US)
  Receive Date: 20190312
  Receipt Date: 20190312
  Transmission Date: 20190711
  Serious: Yes (Death)
  Sender: FDA-Public Use
  Company Number: None

PATIENT
  Age: 60 Year
  Sex: Male
  Weight: 128 kg

DRUGS (1)
  1. ENOXPARIN SYRINGE 120MG [Suspect]
     Active Substance: ENOXAPARIN
     Indication: ANTICOAGULANT THERAPY
     Route: 058

REACTIONS (2)
  - Haemorrhagic stroke [None]
  - Mental status changes [None]

NARRATIVE: CASE EVENT DATE: 20190311
